FAERS Safety Report 5940831-X (Version None)
Quarter: 2008Q4

REPORT INFORMATION
  Report Type: 
  Country: None (occurrence: None)
  Receive Date: 20081104
  Receipt Date: 20081028
  Transmission Date: 20090506
  Serious: Yes (Hospitalization)
  Sender: FDA-Public Use
  Company Number: JP-ROCHE-579319

PATIENT
  Sex: Female

DRUGS (12)
  1. LUPRAC [Suspect]
     Indication: OEDEMA
     Route: 048
     Dates: start: 20080214, end: 20080222
  2. SHAKUYAKU-KANZO-TO [Suspect]
     Dosage: DAILY DOSE: 3 PACKS
     Route: 048
     Dates: end: 20080214
  3. HERBAL EXTRACTS NOS [Suspect]
     Indication: OEDEMA
     Dosage: DRUG REPORTED AS: ^BOIOGITO^.  DAILY DOSE: 3 PACKS
     Route: 048
     Dates: start: 20080214, end: 20080222
  4. FLUITRAN [Suspect]
     Indication: DRUG USE FOR UNKNOWN INDICATION
     Route: 048
     Dates: end: 20080222
  5. CARDENALIN [Concomitant]
     Route: 048
  6. CONIEL [Concomitant]
     Route: 048
  7. BUFFERIN [Concomitant]
     Dosage: REPORTED AS BUFFERIN 81MG
     Route: 048
  8. RENIVACE [Concomitant]
     Route: 048
  9. OLMETEC [Concomitant]
     Route: 048
  10. BISOPROLOL FUMARATE [Concomitant]
     Dosage: DRUG REPORTED AS 'MAINRIES'
     Route: 048
  11. SIMVASTATIN [Concomitant]
     Route: 048
  12. HYPEN [Concomitant]
     Route: 048
     Dates: end: 20080222

REACTIONS (8)
  - ANOREXIA [None]
  - BLOOD CHLORIDE DECREASED [None]
  - BLOOD CREATINE PHOSPHOKINASE INCREASED [None]
  - BLOOD LACTATE DEHYDROGENASE INCREASED [None]
  - CARDIAC DISORDER [None]
  - HYPOKALAEMIA [None]
  - METABOLIC ALKALOSIS [None]
  - PSEUDOALDOSTERONISM [None]
